FAERS Safety Report 12718436 (Version 2)
Quarter: 2016Q4

REPORT INFORMATION
  Report Type: Spontaneous
  Country: US (occurrence: US)
  Receive Date: 20160906
  Receipt Date: 20161208
  Transmission Date: 20170207
  Serious: Yes (Hospitalization, Other)
  Sender: FDA-Public Use
  Company Number: US-AMGEN-USASP2016104206

PATIENT
  Age: 71 Year
  Sex: Male

DRUGS (4)
  1. VANCOMYCIN [Concomitant]
     Active Substance: VANCOMYCIN
  2. DECADRON [Concomitant]
     Active Substance: DEXAMETHASONE
  3. BLINCYTO [Suspect]
     Active Substance: BLINATUMOMAB
     Indication: PRODUCT USED FOR UNKNOWN INDICATION
     Dosage: 56 MUG, QOD
     Route: 065
  4. ANCEF [Concomitant]
     Active Substance: CEFAZOLIN SODIUM

REACTIONS (7)
  - Haemoglobin decreased [Unknown]
  - White blood cell count abnormal [Unknown]
  - Device related infection [Unknown]
  - Fatigue [Unknown]
  - Asthenia [Unknown]
  - Staphylococcal sepsis [Unknown]
  - Dizziness [Unknown]

NARRATIVE: CASE EVENT DATE: 20160809
